FAERS Safety Report 18774842 (Version 1)
Quarter: 2021Q1

REPORT INFORMATION
  Report Type: Report from Study
  Country: CA (occurrence: CA)
  Receive Date: 20210122
  Receipt Date: 20210122
  Transmission Date: 20210419
  Serious: Yes (Other)
  Sender: FDA-Public Use
  Company Number: CA-BAYER-2020-044475

PATIENT
  Age: 56 Year
  Sex: Female

DRUGS (7)
  1. VITRAKVI [Suspect]
     Active Substance: LAROTRECTINIB
     Indication: SALIVARY GLAND CANCER
     Dosage: 100 MG, QD
     Dates: start: 20200605
  2. VITRAKVI [Suspect]
     Active Substance: LAROTRECTINIB
     Indication: SALIVARY GLAND CANCER
     Dosage: 100 MG, BID
  3. RESTORALAX [Concomitant]
     Active Substance: POLYETHYLENE GLYCOL 3350
     Indication: CONSTIPATION
     Dosage: UNK
     Dates: start: 20180101
  4. SYNTHROID [Concomitant]
     Active Substance: LEVOTHYROXINE SODIUM
     Indication: HYPOTHYROIDISM
     Dosage: 1.25 MG, QD
     Route: 048
     Dates: start: 20080101
  5. VITRAKVI [Suspect]
     Active Substance: LAROTRECTINIB
     Indication: SALIVARY GLAND CANCER
     Dosage: 100 MG, BID (5 ML)
     Dates: start: 20200310
  6. SYNTHROID [Concomitant]
     Active Substance: LEVOTHYROXINE SODIUM
     Indication: HYPOTHYROIDISM
     Dosage: 1.5 MG
     Route: 048
     Dates: start: 202004
  7. FERAMAX [Concomitant]
     Active Substance: IRON\POLYSACCHARIDES
     Indication: IRON DEFICIENCY
     Dosage: 1 DF, QD
     Dates: start: 20050101, end: 202007

REACTIONS (12)
  - Paraesthesia [Not Recovered/Not Resolved]
  - Hepatic enzyme increased [Recovering/Resolving]
  - Flushing [None]
  - Feeling cold [None]
  - Constipation [Not Recovered/Not Resolved]
  - Dizziness [Not Recovered/Not Resolved]
  - Feeling hot [Not Recovered/Not Resolved]
  - Blood thyroid stimulating hormone increased [Recovering/Resolving]
  - Myalgia [None]
  - Nausea [Not Recovered/Not Resolved]
  - Hemianaesthesia [None]
  - Fatigue [Not Recovered/Not Resolved]

NARRATIVE: CASE EVENT DATE: 2020
